FAERS Safety Report 7526537-4 (Version None)
Quarter: 2011Q2

REPORT INFORMATION
  Report Type: 
  Country: None (occurrence: None)
  Receive Date: 20110606
  Receipt Date: 20110523
  Transmission Date: 20111010
  Serious: Yes (Hospitalization)
  Sender: FDA-Public Use
  Company Number: JP-UCBSA-029465

PATIENT
  Sex: Male

DRUGS (12)
  1. CIMZIA [Suspect]
     Indication: RHEUMATOID ARTHRITIS
     Dosage: RA0006
     Route: 058
  2. PRAVASTATIN SODIUM [Concomitant]
     Indication: HYPERLIPIDAEMIA
     Route: 048
     Dates: start: 20001205
  3. TIGASON [Concomitant]
     Indication: PSORIASIS
     Route: 048
     Dates: start: 20010508
  4. CIMZIA [Suspect]
     Route: 058
     Dates: start: 20090716
  5. MUCOSTA TABLETS [Concomitant]
     Indication: GASTRITIS
     Route: 048
     Dates: start: 20081009
  6. ETODOLAC [Concomitant]
     Indication: RHEUMATOID ARTHRITIS
     Route: 048
     Dates: start: 20080912
  7. CIMZIA [Suspect]
     Dosage: RA0006
     Route: 058
     Dates: start: 20090326
  8. SELTOUCH [Concomitant]
     Indication: RHEUMATOID ARTHRITIS
     Dosage: ADEQUATE DOSE
     Route: 062
     Dates: start: 20100105
  9. PREDNISOLONE [Concomitant]
     Indication: RHEUMATOID ARTHRITIS
     Route: 048
     Dates: start: 20080912
  10. AMLODIPINE [Concomitant]
     Indication: HYPERTENSION
     Route: 048
     Dates: start: 20001205
  11. ENALAPRIL MALEATE [Concomitant]
     Indication: HYPERTENSION
     Route: 048
     Dates: start: 20001205
  12. PRANOPROFEN [Concomitant]
     Indication: CATARACT
     Dosage: 4 GTT
     Route: 047

REACTIONS (1)
  - COLON ADENOMA [None]
